FAERS Safety Report 8432086-1 (Version None)
Quarter: 2012Q2

REPORT INFORMATION
  Report Type: 
  Country: None (occurrence: None)
  Receive Date: 20120606
  Receipt Date: 20120523
  Transmission Date: 20120825
  Serious: Yes (Hospitalization, Other)
  Sender: FDA-Public Use
  Company Number: INT_00072_2012

PATIENT
  Age: 50 Year
  Sex: Female

DRUGS (4)
  1. CEFTRIAXONE [Suspect]
     Dosage: (UNKNOWN DF)
  2. INDAPAMID (UNKNOWN) [Concomitant]
  3. ACITRETIN [Suspect]
     Indication: PSORIASIS
     Dosage: (UNKNOWN DF)
  4. BISOPROLOL FUMARATE (UNKNOWN) [Concomitant]

REACTIONS (18)
  - HAEMATOCRIT DECREASED [None]
  - BRAIN NATRIURETIC PEPTIDE INCREASED [None]
  - CARDIAC DISORDER [None]
  - BETA 2 MICROGLOBULIN INCREASED [None]
  - THYROID DISORDER [None]
  - DELUSIONAL DISORDER, UNSPECIFIED TYPE [None]
  - BLOOD THYROID STIMULATING HORMONE DECREASED [None]
  - HEPATIC STEATOSIS [None]
  - DEPRESSION [None]
  - ADRENAL ADENOMA [None]
  - ERYTHRODERMIC PSORIASIS [None]
  - HAEMOGLOBIN DECREASED [None]
  - GAMMA-GLUTAMYLTRANSFERASE INCREASED [None]
  - BUNDLE BRANCH BLOCK RIGHT [None]
  - TRI-IODOTHYRONINE FREE DECREASED [None]
  - MANIA [None]
  - BLOOD IMMUNOGLOBULIN E INCREASED [None]
  - FIBRIN D DIMER INCREASED [None]
